FAERS Safety Report 21758274 (Version 1)
Quarter: 2022Q4

REPORT INFORMATION
  Report Type: Spontaneous
  Country: LB (occurrence: LB)
  Receive Date: 20221221
  Receipt Date: 20221221
  Transmission Date: 20230113
  Serious: Yes (Death, Other)
  Sender: FDA-Public Use
  Company Number: LB-SUN PHARMACEUTICAL INDUSTRIES LTD-2022RR-369403

PATIENT
  Age: 61 Year
  Sex: Male
  Weight: 80 kg

DRUGS (1)
  1. METFORMIN [Suspect]
     Active Substance: METFORMIN HYDROCHLORIDE
     Indication: Diabetes mellitus
     Dosage: 850 MILLIGRAM, BID
     Route: 065

REACTIONS (5)
  - Lactic acidosis [Fatal]
  - Hypotension [Unknown]
  - Altered state of consciousness [Unknown]
  - Abdominal pain [Unknown]
  - Diarrhoea [Unknown]
